FAERS Safety Report 9478305 (Version 3)
Quarter: 2013Q4

REPORT INFORMATION
  Report Type: Report from Study
  Country: BR (occurrence: BR)
  Receive Date: 20130827
  Receipt Date: 20131014
  Transmission Date: 20140711
  Serious: Yes (Other)
  Sender: FDA-Public Use
  Company Number: BR-NOVOPROD-353517

PATIENT
  Age: 72 Year
  Sex: Female
  Weight: 80.5 kg

DRUGS (3)
  1. LIRAGLUTIDE FLEXPEN [Suspect]
     Indication: TYPE 2 DIABETES MELLITUS
     Dosage: 1.2 MG, QD
     Route: 058
     Dates: start: 20120120, end: 20120413
  2. LIRAGLUTIDE FLEXPEN [Suspect]
     Dosage: 0.6 MG, QD
     Route: 058
     Dates: start: 20120420, end: 20130716
  3. LIRAGLUTIDE FLEXPEN [Suspect]
     Dosage: UNK UNK, QD
     Dates: start: 20130720

REACTIONS (1)
  - Cholelithiasis [Not Recovered/Not Resolved]
